FAERS Safety Report 9248807 (Version 2)
Quarter: 2013Q3

REPORT INFORMATION
  Report Type: Spontaneous
  Country: US (occurrence: US)
  Receive Date: 20130423
  Receipt Date: 20130807
  Transmission Date: 20140515
  Serious: Yes (Death, Hospitalization)
  Sender: FDA-Public Use
  Company Number: US-GILEAD-2013-0073949

PATIENT
  Sex: Female

DRUGS (9)
  1. CAYSTON [Suspect]
     Indication: CYSTIC FIBROSIS LUNG
     Dosage: 75 MG, UNK
     Route: 055
  2. CREON [Concomitant]
  3. ALLEGRA [Concomitant]
     Dosage: UNK
  4. ADVAIR [Concomitant]
  5. ALBUTEROL                          /00139501/ [Concomitant]
  6. PULMICORT [Concomitant]
  7. FLUCONAZOLE [Concomitant]
     Dosage: UNK
  8. ATROVENT [Concomitant]
  9. ZOFRAN                             /00955301/ [Concomitant]

REACTIONS (1)
  - Respiratory failure [Fatal]
